FAERS Safety Report 17717839 (Version 13)
Quarter: 2021Q1

REPORT INFORMATION
  Report Type: Report from Study
  Country: CA (occurrence: CA)
  Receive Date: 20200428
  Receipt Date: 20210331
  Transmission Date: 20210419
  Serious: Yes (Other)
  Sender: FDA-Public Use
  Company Number: PHHY2015CA085384

PATIENT
  Age: 81 Year
  Sex: Male

DRUGS (7)
  1. SANDOSTATIN LAR DEPOT [Suspect]
     Active Substance: OCTREOTIDE ACETATE
     Dosage: 40 MG, QMO (EVERY 28 DAYS)
     Route: 030
     Dates: start: 20181028
  2. SANDOSTATIN [Suspect]
     Active Substance: OCTREOTIDE ACETATE
     Indication: NEUROENDOCRINE TUMOUR
  3. SANDOSTATIN [Suspect]
     Active Substance: OCTREOTIDE ACETATE
     Indication: CARCINOID SYNDROME
     Dosage: 100 UG, ONCE/SINGLE (TEST DOSE)
     Route: 058
     Dates: start: 20150713
  4. SANDOSTATIN LAR DEPOT [Suspect]
     Active Substance: OCTREOTIDE ACETATE
     Indication: NEUROENDOCRINE TUMOUR
     Dosage: 40 MG, QMO (EVERY 4 WEEKS)
     Route: 030
     Dates: start: 20150720
  5. SANDOSTATIN LAR DEPOT [Suspect]
     Active Substance: OCTREOTIDE ACETATE
     Dosage: 30 MG, QMO (EVERY 4 WEEKS)
     Route: 030
     Dates: start: 20180815
  6. SANDOSTATIN [Suspect]
     Active Substance: OCTREOTIDE ACETATE
  7. SANDOSTATIN LAR DEPOT [Suspect]
     Active Substance: OCTREOTIDE ACETATE
     Indication: CARCINOID SYNDROME
     Dosage: 30 MG, QMO (EVERY 4 WEEKS)
     Route: 030
     Dates: start: 20150720

REACTIONS (11)
  - Blood pressure increased [Unknown]
  - Oedema peripheral [Unknown]
  - Fatigue [Unknown]
  - Blood pressure systolic increased [Unknown]
  - Oxygen saturation decreased [Unknown]
  - Second primary malignancy [Unknown]
  - Nausea [Unknown]
  - Heart rate decreased [Unknown]
  - Squamous cell carcinoma of skin [Unknown]
  - Ingrowing nail [Unknown]
  - Abdominal discomfort [Unknown]

NARRATIVE: CASE EVENT DATE: 202102
